FAERS Safety Report 8782313 (Version 1)
Quarter: 2012Q4

REPORT INFORMATION
  Report Type: Report from Study
  Country: US (occurrence: US)
  Receive Date: 20120913
  Receipt Date: 20120913
  Transmission Date: 20130627
  Serious: No
  Sender: FDA-Public Use
  Company Number: US-VERTEX PHARMACEUTICAL INC.-2012-019996

PATIENT
  Sex: Male
  Weight: 77 kg

DRUGS (5)
  1. VX-950 [Suspect]
     Indication: HEPATITIS C
     Dosage: 750 mg, tid
     Route: 048
  2. METFORMIN [Concomitant]
     Dosage: 500 mg, UNK
  3. OMEPRAZOLE [Concomitant]
     Dosage: 20 mg, UNK
  4. GLYBURIDE [Concomitant]
     Dosage: 5 mg, UNK
  5. SPIRONOLACTON [Concomitant]
     Dosage: 25 mg, UNK

REACTIONS (3)
  - Influenza like illness [Unknown]
  - Somnolence [Unknown]
  - Asthenia [Unknown]
